FAERS Safety Report 23539094 (Version 1)
Quarter: 2024Q1

REPORT INFORMATION
  Report Type: Spontaneous
  Country: US (occurrence: US)
  Receive Date: 20240219
  Receipt Date: 20240219
  Transmission Date: 20240410
  Serious: Yes (Other)
  Sender: FDA-Public Use
  Company Number: US-MYLANLABS-2024M1015931

PATIENT
  Age: 42 Year
  Sex: Male

DRUGS (5)
  1. OXALIPLATIN [Suspect]
     Active Substance: OXALIPLATIN
     Indication: Colon cancer stage IV
     Dosage: UNK
     Route: 065
  2. BEVACIZUMAB [Suspect]
     Active Substance: BEVACIZUMAB
     Indication: Colon cancer stage IV
     Dosage: UNK
     Route: 065
  3. TIPIRACIL [Suspect]
     Active Substance: TIPIRACIL
     Indication: Colon cancer stage IV
     Dosage: UNK
     Route: 065
  4. TRIFLURIDINE [Suspect]
     Active Substance: TRIFLURIDINE
     Indication: Colon cancer stage IV
     Dosage: UNK
     Route: 065
  5. REGORAFENIB [Suspect]
     Active Substance: REGORAFENIB
     Indication: Colon cancer stage IV
     Dosage: UNK
     Route: 065

REACTIONS (2)
  - Drug ineffective [Unknown]
  - Disease progression [Unknown]
